FAERS Safety Report 7794919-1 (Version None)
Quarter: 2011Q4

REPORT INFORMATION
  Report Type: 
  Country: None (occurrence: None)
  Receive Date: 20111004
  Receipt Date: 20110929
  Transmission Date: 20120403
  Serious: Yes (Other)
  Sender: FDA-Public Use
  Company Number: JP-ABBOTT-11P-087-0856764-00

PATIENT
  Age: 36 Year
  Sex: Female
  Weight: 55.4 kg

DRUGS (10)
  1. PROPOFOL [Suspect]
     Indication: INDUCTION OF ANAESTHESIA
  2. SEVOFLURANE [Suspect]
     Indication: MAINTENANCE OF ANAESTHESIA
     Route: 055
  3. REMIFENTANIL [Concomitant]
     Indication: MAINTENANCE OF ANAESTHESIA
  4. ROCURONIUM [Concomitant]
     Indication: MUSCLE RELAXANT THERAPY
     Route: 065
  5. FENTANYL [Concomitant]
     Indication: INDUCTION OF ANAESTHESIA
  6. HETASTARCH IN SODIUM CHLORIDE [Concomitant]
     Indication: INFUSION
     Route: 065
  7. CRYSTALIOID SOLUTION [Concomitant]
     Indication: INFUSION
     Route: 065
  8. ALBUMIN (HUMAN) [Suspect]
     Indication: BLOOD PRESSURE MANAGEMENT
  9. PHENYLEPHRINE HCL [Concomitant]
     Indication: BLOOD PRESSURE MANAGEMENT
     Route: 065
  10. DOPAMINE HCL [Suspect]
     Indication: PRODUCT USED FOR UNKNOWN INDICATION

REACTIONS (4)
  - HAEMOGLOBIN DECREASED [None]
  - MYOCARDIAL ISCHAEMIA [None]
  - METABOLIC ACIDOSIS [None]
  - BLOOD PRESSURE DECREASED [None]
